FAERS Safety Report 8252188-2 (Version None)
Quarter: 2012Q2

REPORT INFORMATION
  Report Type: 
  Country: None (occurrence: None)
  Receive Date: 20120402
  Receipt Date: 20110419
  Transmission Date: 20120825
  Serious: No
  Sender: FDA-Public Use
  Company Number: US-ABBOTT-11P-163-0804464-00

PATIENT
  Sex: Male
  Weight: 96.363 kg

DRUGS (4)
  1. TESTOSTERONE [Suspect]
     Indication: BLOOD TESTOSTERONE DECREASED
     Dosage: DAILY DOSE: 5 GRAM(S)
     Route: 062
     Dates: start: 20110301
  2. SELENIUM SULFIDE [Concomitant]
     Indication: SKIN EXFOLIATION
     Dosage: DAILY DOSE:  UNKNOWN; AS USED: 2%
     Route: 061
  3. TESTOSTERONE [Suspect]
     Indication: HYPERSOMNIA
  4. KETOCONAZOLE [Concomitant]
     Indication: ERYTHEMA
     Dosage: DAILY DOSE:  UNKNOWN
     Route: 061
     Dates: end: 20110301

REACTIONS (10)
  - DRUG EFFECT DECREASED [None]
  - SKIN EXFOLIATION [None]
  - ERYTHEMA [None]
  - ROSACEA [None]
  - SUNBURN [None]
  - DRUG INEFFECTIVE [None]
  - BREAST TENDERNESS [None]
  - DRY SKIN [None]
  - HYPERSOMNIA [None]
  - CONDITION AGGRAVATED [None]
